FAERS Safety Report 4509088-0 (Version None)
Quarter: 2004Q4

REPORT INFORMATION
  Report Type: 
  Country: None (occurrence: None)
  Receive Date: 20041025
  Receipt Date: 20040723
  Transmission Date: 20050328
  Serious: Yes (Other)
  Sender: FDA-Public Use
  Company Number: US-JNJFOC-20040706464

PATIENT
  Age: 54 Year
  Sex: Female

DRUGS (10)
  1. INFLIXIMAB (INFLIXIMAB, RECOMBINANT) LYOPHILIZED POWDER [Suspect]
     Indication: RHEUMATOID ARTHRITIS
     Dosage: INTRAVENOUS
     Route: 042
     Dates: start: 20020116, end: 20040401
  2. ALLERGRA (FEXOFENADINE HYDROCHLORIDE) [Concomitant]
  3. INSULIN [Concomitant]
  4. PLAQUENIL [Concomitant]
  5. PRILOSEC [Concomitant]
  6. PROZAC [Concomitant]
  7. SYNTHROID [Concomitant]
  8. TYLENOL [Concomitant]
  9. BEXTRA [Concomitant]
  10. BUMEX [Concomitant]

REACTIONS (1)
  - CHEST PAIN [None]
